FAERS Safety Report 5058495-9 (Version None)
Quarter: 2006Q3

REPORT INFORMATION
  Report Type: 
  Country: None (occurrence: None)
  Receive Date: 20060721
  Receipt Date: 20060713
  Transmission Date: 20061208
  Serious: Yes (Other)
  Sender: FDA-Public Use
  Company Number: FR-ABBOTT-06P-056-0338130-00

PATIENT
  Age: 25 Year
  Sex: Female

DRUGS (2)
  1. DEPAKENE [Suspect]
     Indication: EPILEPSY
  2. LAMOTRIGINE [Concomitant]
     Indication: EPILEPSY

REACTIONS (1)
  - ABORTION INDUCED [None]
